FAERS Safety Report 19020150 (Version 1)
Quarter: 2021Q1

REPORT INFORMATION
  Report Type: Spontaneous
  Country: US (occurrence: US)
  Receive Date: 20210317
  Receipt Date: 20210317
  Transmission Date: 20210420
  Serious: Yes (Hospitalization)
  Sender: FDA-Public Use
  Company Number: None

PATIENT
  Age: 49 Year
  Sex: Female

DRUGS (11)
  1. FLUCONAZOLE. [Concomitant]
     Active Substance: FLUCONAZOLE
  2. TRAMADOL. [Concomitant]
     Active Substance: TRAMADOL
  3. A?HYDROCORT [Concomitant]
     Active Substance: HYDROCORTISONE SODIUM SUCCINATE
  4. DOXYCYC MONO [Concomitant]
     Active Substance: DOXYCYCLINE
  5. FLUDROCORT [Concomitant]
  6. FUSFOMYCIN [Concomitant]
  7. DIMETHYL FUM [Suspect]
     Active Substance: DIMETHYL FUMARATE
     Indication: MULTIPLE SCLEROSIS
     Route: 048
     Dates: start: 20200919
  8. NITROFURANTN [Concomitant]
     Active Substance: NITROFURANTOIN
  9. METHENAM HIP [Concomitant]
  10. LEVOTHYROXIN [Concomitant]
     Active Substance: LEVOTHYROXINE
  11. CLOTRIM/BETA [Concomitant]

REACTIONS (3)
  - Sepsis [None]
  - White blood cell count increased [None]
  - Urinary tract infection [None]
